FAERS Safety Report 8996697 (Version 5)
Quarter: 2013Q3

REPORT INFORMATION
  Report Type: Spontaneous
  Country: US (occurrence: US)
  Receive Date: 20130104
  Receipt Date: 20130829
  Transmission Date: 20140515
  Serious: Yes (Death, Hospitalization)
  Sender: FDA-Public Use
  Company Number: US-B.I. PHARMACEUTICALS,INC./RIDGEFIELD-2013-BI-00060BP

PATIENT
  Age: 76 Year
  Sex: Male
  Weight: 80.74 kg

DRUGS (9)
  1. PRADAXA [Suspect]
     Indication: ATRIAL FIBRILLATION
     Dosage: 300 MG
     Route: 048
     Dates: start: 20101224, end: 20101228
  2. COREG [Concomitant]
     Dosage: 6.5 MG
     Dates: start: 201005, end: 201012
  3. HYZAAR [Concomitant]
     Dates: start: 200510, end: 2010
  4. LASIX [Concomitant]
     Dosage: 20 MG
  5. ALDACTONE [Concomitant]
     Dosage: 25 MG
  6. ASPIRIN [Concomitant]
     Dosage: 81 MG
  7. SPECTRAVITE [Concomitant]
  8. SPIRONOLACTONE [Concomitant]
     Dosage: 25 MG
  9. MULTIVITAMINS [Concomitant]

REACTIONS (6)
  - Disseminated intravascular coagulation [Fatal]
  - Shock haemorrhagic [Fatal]
  - Haematuria [Fatal]
  - Haemorrhagic anaemia [Fatal]
  - Upper gastrointestinal haemorrhage [Unknown]
  - Urinary bladder haemorrhage [Unknown]
